FAERS Safety Report 8414873-9 (Version None)
Quarter: 2012Q2

REPORT INFORMATION
  Report Type: 
  Country: None (occurrence: None)
  Receive Date: 20120606
  Receipt Date: 20120529
  Transmission Date: 20120825
  Serious: Yes (Other)
  Sender: FDA-Public Use
  Company Number: US-ASTRAZENECA-2011SE32258

PATIENT
  Age: 55 Year
  Sex: Female

DRUGS (17)
  1. BISMUTH SUBSALICYLATE [Concomitant]
  2. FLEXASE [Concomitant]
  3. PEPCID [Concomitant]
     Dosage: ONCE OR TWICE A MONTH
  4. ALKA SELTZER [Concomitant]
  5. ACETAMINOPHEN [Concomitant]
     Dosage: BID
  6. NEXIUM [Suspect]
     Route: 048
     Dates: start: 20080509
  7. NEXIUM [Suspect]
     Route: 048
     Dates: start: 20080509
  8. NEXIUM [Suspect]
     Dosage: 40 MG DAILY ONE HOUR BEFORE BREAKFAST
     Route: 048
     Dates: start: 20100409
  9. PREVACID [Concomitant]
     Dates: start: 20080421, end: 20080509
  10. NEXIUM [Suspect]
     Indication: GASTROOESOPHAGEAL REFLUX DISEASE
     Dosage: EVERYDAY
     Route: 048
     Dates: start: 20020101, end: 20110101
  11. KOPIDEX [Concomitant]
     Route: 048
  12. NEXIUM [Suspect]
     Dosage: 40 MG DAILY ONE HOUR BEFORE BREAKFAST
     Route: 048
     Dates: start: 20100409
  13. ESTRADIOL [Concomitant]
  14. LEXAPRO [Concomitant]
     Dosage: 10 MG QAM
  15. NEXIUM [Suspect]
     Indication: DYSPEPSIA
     Dosage: EVERYDAY
     Route: 048
     Dates: start: 20020101, end: 20110101
  16. FENOFIBRATE [Concomitant]
  17. PEG-3350 [Concomitant]

REACTIONS (5)
  - LOWER LIMB FRACTURE [None]
  - OSTEOPOROSIS [None]
  - TIBIA FRACTURE [None]
  - JOINT INJURY [None]
  - FALL [None]
